FAERS Safety Report 7876666-0 (Version None)
Quarter: 2011Q4

REPORT INFORMATION
  Report Type: 
  Country: None (occurrence: None)
  Receive Date: 20111031
  Receipt Date: 20100709
  Transmission Date: 20120403
  Serious: No
  Sender: FDA-Public Use
  Company Number: US-BAYER-201028389NA

PATIENT
  Age: 67 Year
  Sex: Male

DRUGS (2)
  1. LEVITRA [Suspect]
     Indication: ERECTILE DYSFUNCTION
     Dosage: 5 MG, UNK
     Route: 048
  2. AMLODIPINE [Concomitant]

REACTIONS (2)
  - BLOOD TESTOSTERONE DECREASED [None]
  - EJACULATION DISORDER [None]
